FAERS Safety Report 9272490 (Version 1)
Quarter: 2013Q2

REPORT INFORMATION
  Report Type: Spontaneous
  Country: US (occurrence: US)
  Receive Date: 20130506
  Receipt Date: 20130506
  Transmission Date: 20140414
  Serious: No
  Sender: FDA-Public Use
  Company Number: US-ASTRAZENECA-2012SE79456

PATIENT
  Sex: Female

DRUGS (5)
  1. PRILOSEC OTC [Suspect]
     Route: 048
     Dates: start: 20120906, end: 20120911
  2. PREDNISONE [Concomitant]
  3. ANTIHYPERTENSIVES [Concomitant]
     Indication: HYPERTENSION
  4. JANUVIA [Concomitant]
     Indication: DIABETES MELLITUS
  5. VITAMINS [Concomitant]

REACTIONS (1)
  - Blood glucose increased [Recovered/Resolved]
